FAERS Safety Report 5248949-4 (Version None)
Quarter: 2007Q1

REPORT INFORMATION
  Report Type: 
  Country: None (occurrence: None)
  Receive Date: 20070222
  Receipt Date: 20070209
  Transmission Date: 20070707
  Serious: Yes (Other)
  Sender: FDA-Public Use
  Company Number: 2007SP002662

PATIENT
  Age: 39 Year
  Sex: Male

DRUGS (2)
  1. PEG-INTRON [Suspect]
     Indication: HEPATITIS C
     Dosage: SC
     Route: 058
     Dates: start: 20061201
  2. REBETOL [Suspect]
     Indication: HEPATITIS C
     Dosage: PO
     Route: 048
     Dates: start: 20061201

REACTIONS (8)
  - AGGRESSION [None]
  - DEHYDRATION [None]
  - DRUG INEFFECTIVE [None]
  - HEPATIC ENZYME ABNORMAL [None]
  - IRRITABILITY [None]
  - MUSCULOSKELETAL DISORDER [None]
  - UPPER LIMB DEFORMITY [None]
  - VOMITING [None]
